FAERS Safety Report 23178057 (Version 1)
Quarter: 2023Q4

REPORT INFORMATION
  Report Type: Spontaneous
  Country: HR (occurrence: HR)
  Receive Date: 20231113
  Receipt Date: 20231113
  Transmission Date: 20240109
  Serious: Yes (Hospitalization, Other)
  Sender: FDA-Public Use
  Company Number: HR-BAYER-2023A160187

PATIENT
  Sex: Female

DRUGS (1)
  1. ADEMPAS [Suspect]
     Active Substance: RIOCIGUAT
     Indication: Pulmonary arterial hypertension

REACTIONS (16)
  - Catheterisation cardiac [None]
  - Pulmonary arterial pressure increased [None]
  - Pulmonary arterial wedge pressure increased [None]
  - Right atrial pressure increased [None]
  - Pulmonary vascular resistance abnormality [None]
  - Pulmonary hypertension [None]
  - Pleural effusion [None]
  - Forced vital capacity [None]
  - Dyspnoea [None]
  - Fatigue [None]
  - Palpitations [None]
  - Oxygen saturation decreased [None]
  - Cardiac dysfunction [None]
  - Pericardial effusion [None]
  - Cardiovascular disorder [None]
  - Obstructive airways disorder [None]
